FAERS Safety Report 6792642-3 (Version None)
Quarter: 2010Q2

REPORT INFORMATION
  Report Type: 
  Country: None (occurrence: None)
  Receive Date: 20100624
  Receipt Date: 20080828
  Transmission Date: 20101027
  Serious: No
  Sender: FDA-Public Use
  Company Number: US-PFIZER INC-2008072450

PATIENT
  Sex: Female

DRUGS (3)
  1. XALATAN [Suspect]
  2. BETA BLOCKING AGENTS [Concomitant]
  3. DRUG, UNSPECIFIED [Concomitant]
     Indication: HYPERTENSION

REACTIONS (2)
  - HYPERTENSION [None]
  - UNEVALUABLE EVENT [None]
